FAERS Safety Report 4887485-1 (Version None)
Quarter: 2006Q1

REPORT INFORMATION
  Report Type: 
  Country: None (occurrence: None)
  Receive Date: 20060118
  Receipt Date: 20060105
  Transmission Date: 20060701
  Serious: Yes (Hospitalization)
  Sender: FDA-Public Use
  Company Number: 2006005470

PATIENT
  Age: 73 Year
  Sex: Female

DRUGS (6)
  1. FELDENE [Suspect]
     Indication: OSTEOARTHRITIS
     Dosage: ORAL
     Route: 048
     Dates: start: 19970615, end: 20051005
  2. DI-ANTALVIC (DEXTROPOPOXYPHENE HYDROCHLORIDE, PARACETAMOL) [Concomitant]
  3. TARKA [Concomitant]
  4. OMEPRAZOLE [Concomitant]
  5. TOPALIC (TRAMADOL HYDROCHLORIDE) [Concomitant]
  6. PRAVASTATIN [Concomitant]

REACTIONS (6)
  - ABDOMINAL PAIN LOWER [None]
  - CHILLS [None]
  - COLITIS ULCERATIVE [None]
  - COLONIC STENOSIS [None]
  - ENTEROCOLITIS HAEMORRHAGIC [None]
  - PYREXIA [None]
